FAERS Safety Report 9367336 (Version 1)
Quarter: 2013Q2

REPORT INFORMATION
  Report Type: Spontaneous
  Country: JP (occurrence: JP)
  Receive Date: 20130625
  Receipt Date: 20130625
  Transmission Date: 20140414
  Serious: Yes (Hospitalization)
  Sender: FDA-Public Use
  Company Number: JP-EISAI INC-E2090-02667-SPO-JP

PATIENT
  Age: 59 Year
  Sex: Male

DRUGS (7)
  1. TRERIEF [Suspect]
     Indication: PARKINSONISM
     Route: 048
     Dates: start: 20130403
  2. MADOPAR [Concomitant]
     Indication: PARKINSONISM
     Dosage: 900 MG DAILY
     Route: 048
  3. AMANTADINE [Concomitant]
     Indication: PARKINSONISM
     Dosage: 450 MG DAILY
     Route: 048
  4. ARTANE [Concomitant]
     Indication: PARKINSONISM
     Dosage: 18 MG DAILY
     Route: 048
  5. COMTAN [Concomitant]
     Indication: PARKINSONISM
     Dosage: 900 MG DAILY
     Route: 048
  6. MIRAPEX-LA [Concomitant]
     Indication: PARKINSONISM
     Dosage: 4.5 MG DAILY
     Route: 048
  7. NORVASC [Concomitant]
     Indication: HYPERTENSION
     Dosage: 2.5 MG DAILY
     Route: 048

REACTIONS (1)
  - Deep vein thrombosis [Recovering/Resolving]
